FAERS Safety Report 9619659 (Version 1)
Quarter: 2013Q4

REPORT INFORMATION
  Report Type: Report from Study
  Country: FI (occurrence: FI)
  Receive Date: 20131014
  Receipt Date: 20131014
  Transmission Date: 20140711
  Serious: Yes (Hospitalization, Other)
  Sender: FDA-Public Use
  Company Number: PHHO2013FI013029

PATIENT
  Age: 76 Year
  Sex: Male

DRUGS (11)
  1. EVEROLIMUS [Suspect]
     Indication: RENAL CELL CARCINOMA
     Dosage: 10 MG
     Dates: start: 20130717, end: 20130822
  2. EVEROLIMUS [Suspect]
     Dosage: UNK
  3. AMILORIDE HCL [Concomitant]
     Dosage: UNK UKN, UNK
  4. BISOPROLOL HEMIFUMARATE [Concomitant]
     Dosage: UNK UKN, UNK
  5. ENALAPRIL MALEATE [Concomitant]
     Dosage: UNK UKN, UNK
  6. SIMVASTATIN [Concomitant]
     Dosage: UNK UKN, UNK
  7. ENOXAPARIN [Concomitant]
     Dosage: UNK UKN, UNK
     Dates: start: 20130821
  8. LEVOTHYROXINE [Concomitant]
     Dosage: UNK UKN, UNK
     Dates: start: 20130813
  9. MORPHINE [Concomitant]
     Dosage: UNK UKN, UNK
     Dates: start: 20130729
  10. ZOLPIDEM TARTRATE [Concomitant]
     Dosage: UNK UKN, UNK
     Dates: start: 20130726
  11. PANTOPRAZOLE [Concomitant]
     Dosage: UNK UKN, UNK
     Dates: start: 20130726

REACTIONS (11)
  - Cardiac failure [Unknown]
  - Pyrexia [Recovering/Resolving]
  - Dyspnoea [Unknown]
  - Fatigue [Unknown]
  - Lung infection [Unknown]
  - C-reactive protein increased [Unknown]
  - Renal cell carcinoma [Unknown]
  - Malignant neoplasm progression [Unknown]
  - Haemoglobin decreased [Unknown]
  - Performance status decreased [Unknown]
  - Platelet count decreased [Unknown]
